FAERS Safety Report 14857117 (Version 6)
Quarter: 2022Q3

REPORT INFORMATION
  Report Type: Report from Study
  Country: CN (occurrence: None)
  Receive Date: 20180507
  Receipt Date: 20220708
  Transmission Date: 20221027
  Serious: Yes (Hospitalization)
  Sender: FDA-Public Use
  Company Number: CN-ROCHE-2115643

PATIENT
  Age: 60 Year
  Sex: Female
  Weight: 63 kg

DRUGS (44)
  1. ATEZOLIZUMAB [Suspect]
     Active Substance: ATEZOLIZUMAB
     Indication: Ovarian cancer
     Dosage: MOST RECENT DOSE PRIOR TO SAE ON 12/APR/2018?ON DAY 1 OF EACH 21-DAY CYCLE
     Route: 042
     Dates: start: 20180313
  2. PACLITAXEL [Suspect]
     Active Substance: PACLITAXEL
     Indication: Ovarian cancer
     Dosage: MOST RECENT DOSE (283 MG) PRIOR TO SAE ON 12/APR/2018?ON DAY 1 OF EACH 21-DAY CYCLE
     Route: 042
     Dates: start: 20180313
  3. CARBOPLATIN [Suspect]
     Active Substance: CARBOPLATIN
     Indication: Ovarian cancer
     Dosage: MOST RECENT DOSE (650 MG) PRIOR TO SAE ON 12/APR/2018
     Route: 042
     Dates: start: 20180313
  4. BEVACIZUMAB [Suspect]
     Active Substance: BEVACIZUMAB
     Indication: Ovarian cancer
     Dosage: MOST RECENT DOSE (975 MG) PRIOR TO SAE ON 12/APR/2018
     Route: 042
     Dates: start: 20180412
  5. MAGNESIUM ISOGLYCYRRHIZINATE [Concomitant]
     Active Substance: MAGNESIUM ISOGLYCYRRHIZINATE
  6. BENZALKONIUM CHLORIDE [Concomitant]
     Active Substance: BENZALKONIUM CHLORIDE
     Dates: start: 20180305, end: 20180418
  7. LANSOPRAZOLE [Concomitant]
     Active Substance: LANSOPRAZOLE
     Dates: start: 20180403, end: 20180408
  8. FILGRASTIM [Concomitant]
     Active Substance: FILGRASTIM
     Dates: start: 20180407, end: 20180409
  9. ADEMETIONINE [Concomitant]
     Active Substance: ADEMETIONINE
     Dates: start: 20180411, end: 20180412
  10. DEXAMETHASONE SODIUM PHOSPHATE [Concomitant]
     Active Substance: DEXAMETHASONE SODIUM PHOSPHATE
     Dates: start: 20180412, end: 20180412
  11. DEXAMETHASONE SODIUM PHOSPHATE [Concomitant]
     Active Substance: DEXAMETHASONE SODIUM PHOSPHATE
     Dates: start: 20180401, end: 20180401
  12. DEXAMETHASONE SODIUM PHOSPHATE [Concomitant]
     Active Substance: DEXAMETHASONE SODIUM PHOSPHATE
     Route: 042
     Dates: start: 20180523, end: 20180523
  13. PLATELETS [Concomitant]
     Active Substance: HUMAN PLATELET, ALLOGENIC
     Dates: start: 20180401, end: 20180401
  14. DEXAMETHASONE ACETATE [Concomitant]
     Active Substance: DEXAMETHASONE ACETATE
     Indication: Allergy prophylaxis
     Route: 048
     Dates: start: 20180411, end: 20180412
  15. DEXAMETHASONE ACETATE [Concomitant]
     Active Substance: DEXAMETHASONE ACETATE
     Route: 048
     Dates: start: 20180522, end: 20180523
  16. PROMETHAZINE HYDROCHLORIDE [Concomitant]
     Active Substance: PROMETHAZINE HYDROCHLORIDE
     Indication: Allergy prophylaxis
     Dates: start: 20180412, end: 20180412
  17. PROMETHAZINE HYDROCHLORIDE [Concomitant]
     Active Substance: PROMETHAZINE HYDROCHLORIDE
     Dates: start: 20180523, end: 20180523
  18. METOCLOPRAMIDE DIHYDROCHLORIDE [Concomitant]
     Dates: start: 20180412, end: 20180412
  19. METOCLOPRAMIDE DIHYDROCHLORIDE [Concomitant]
     Dates: start: 20180512, end: 20180512
  20. METOCLOPRAMIDE DIHYDROCHLORIDE [Concomitant]
     Dates: start: 20180515, end: 20180515
  21. METOCLOPRAMIDE DIHYDROCHLORIDE [Concomitant]
     Dates: start: 20180516, end: 20180516
  22. METOCLOPRAMIDE DIHYDROCHLORIDE [Concomitant]
     Dates: start: 20180523, end: 20180523
  23. PALONOSETRON HYDROCHLORIDE [Concomitant]
     Active Substance: PALONOSETRON HYDROCHLORIDE
     Dates: start: 20180412, end: 20180412
  24. PALONOSETRON HYDROCHLORIDE [Concomitant]
     Active Substance: PALONOSETRON HYDROCHLORIDE
     Dates: start: 20180523, end: 20180523
  25. SODIUM CHLORIDE [Concomitant]
     Active Substance: SODIUM CHLORIDE
     Dates: start: 20180412, end: 20180412
  26. SODIUM CHLORIDE [Concomitant]
     Active Substance: SODIUM CHLORIDE
     Dates: start: 20180523, end: 20180523
  27. SODIUM CHLORIDE [Concomitant]
     Active Substance: SODIUM CHLORIDE
     Dates: start: 20180510, end: 20180518
  28. DEXTROSE [Concomitant]
     Active Substance: DEXTROSE
     Indication: Nutritional supplementation
     Dates: start: 20180411, end: 20180412
  29. DEXTROSE [Concomitant]
     Active Substance: DEXTROSE
     Dates: start: 20180517, end: 20180517
  30. DEXTROSE [Concomitant]
     Active Substance: DEXTROSE
     Dates: start: 20180523, end: 20180523
  31. DEXTROSE [Concomitant]
     Active Substance: DEXTROSE
     Dates: start: 20180427, end: 20180507
  32. DEXTROSE [Concomitant]
     Active Substance: DEXTROSE
     Dates: start: 20180518, end: 20180523
  33. DEXAMETHASONE [Concomitant]
     Active Substance: DEXAMETHASONE
     Indication: Allergy prophylaxis
     Dosage: 20 TABLET
     Route: 048
  34. DEXAMETHASONE [Concomitant]
     Active Substance: DEXAMETHASONE
     Dosage: 20 TABLET
     Route: 048
  35. COMPOSITE POTASSIUM HYDROGEN PHOSPHATE [Concomitant]
     Dates: start: 20180426, end: 20180426
  36. LIDOCAINE HYDROCHLORIDE [Concomitant]
     Active Substance: LIDOCAINE HYDROCHLORIDE
     Indication: Local anaesthesia
     Dates: start: 20180426, end: 20180426
  37. ONDANSETRON HYDROCHLORIDE [Concomitant]
     Active Substance: ONDANSETRON HYDROCHLORIDE
     Dates: start: 20180516, end: 20180521
  38. MOSAPRIDE CITRATE [Concomitant]
     Active Substance: MOSAPRIDE CITRATE
     Dates: start: 20180517, end: 20180525
  39. PANTOPRAZOLE SODIUM [Concomitant]
     Active Substance: PANTOPRAZOLE SODIUM
     Dates: start: 20180427, end: 20180524
  40. INSULIN NOS [Concomitant]
     Active Substance: INSULIN NOS
     Dates: start: 20180427, end: 20180507
  41. INSULIN NOS [Concomitant]
     Active Substance: INSULIN NOS
     Dates: start: 20180508, end: 20180514
  42. INSULIN NOS [Concomitant]
     Active Substance: INSULIN NOS
     Dates: start: 20180515, end: 20180518
  43. INSULIN NOS [Concomitant]
     Active Substance: INSULIN NOS
     Dates: start: 20180518, end: 20180523
  44. METOCLOPRAMIDE DIHYDROCHLORIDE [Concomitant]
     Dates: start: 20180523, end: 20180523

REACTIONS (1)
  - Ascites [Recovered/Resolved]

NARRATIVE: CASE EVENT DATE: 20180425
